FAERS Safety Report 4433179-6 (Version None)
Quarter: 2004Q3

REPORT INFORMATION
  Report Type: 
  Country: None (occurrence: None)
  Receive Date: 20040823
  Receipt Date: 20040811
  Transmission Date: 20050211
  Serious: Yes (Hospitalization)
  Sender: FDA-Public Use
  Company Number: 04H-163-0270861-00

PATIENT
  Age: 13 Year
  Sex: Male

DRUGS (2)
  1. DEFEROXAMINE MESYLATE FOR INJECTION (DEFEROXAMINE MESYLATE) [Suspect]
     Indication: SICKLE CELL ANAEMIA
     Dosage: SUBCUTANEOUS
     Route: 058
     Dates: start: 20040501
  2. DEFEROXAMINE MESILATE [Concomitant]

REACTIONS (5)
  - CELLULITIS [None]
  - INFECTION [None]
  - INFUSION SITE INFECTION [None]
  - INFUSION SITE PAIN [None]
  - MEDICATION ERROR [None]
